FAERS Safety Report 7601344-2 (Version None)
Quarter: 2011Q3

REPORT INFORMATION
  Report Type: 
  Country: None (occurrence: None)
  Receive Date: 20110711
  Receipt Date: 20110705
  Transmission Date: 20111222
  Serious: Yes (Hospitalization, Congenital Anomaly, Other)
  Sender: FDA-Public Use
  Company Number: US-PFIZER INC-2011151507

PATIENT
  Sex: Male
  Weight: 4 kg

DRUGS (6)
  1. SERTRALINE [Suspect]
     Indication: ANXIETY
  2. ZOLOFT [Suspect]
     Indication: DEPRESSION
  3. SERTRALINE HYDROCHLORIDE [Suspect]
     Indication: DEPRESSION
  4. SERTRALINE [Suspect]
     Indication: DEPRESSION
     Dosage: 50 MG DAILY
     Route: 064
     Dates: start: 20080606
  5. ZOLOFT [Suspect]
     Indication: ANXIETY
     Dosage: UNK
     Route: 064
  6. SERTRALINE HYDROCHLORIDE [Suspect]
     Indication: ANXIETY
     Dosage: 50 MG DAILY
     Route: 064
     Dates: start: 20080101

REACTIONS (17)
  - PATENT DUCTUS ARTERIOSUS [None]
  - NECK INJURY [None]
  - CONSTIPATION [None]
  - ANAL ATRESIA [None]
  - ATRIAL SEPTAL DEFECT [None]
  - FALL [None]
  - BRONCHITIS [None]
  - UPPER RESPIRATORY TRACT INFECTION [None]
  - FACE INJURY [None]
  - MATERNAL EXPOSURE DURING PREGNANCY [None]
  - PERINEAL FISTULA [None]
  - MENTAL IMPAIRMENT [None]
  - PHIMOSIS [None]
  - SPEECH DISORDER DEVELOPMENTAL [None]
  - OTITIS MEDIA [None]
  - JAUNDICE [None]
  - ACNE [None]
